FAERS Safety Report 9511729 (Version 1)
Quarter: 2013Q3

REPORT INFORMATION
  Report Type: Spontaneous
  Country: US (occurrence: None)
  Receive Date: 20130909
  Receipt Date: 20130909
  Transmission Date: 20140515
  Serious: No
  Sender: FDA-Public Use
  Company Number: None

PATIENT
  Age: 76 Year
  Sex: Female
  Weight: 49.9 kg

DRUGS (8)
  1. TRANSDERM-SCOP [Suspect]
     Indication: MOTION SICKNESS
     Dosage: 4 PATCHES
     Dates: start: 20130831, end: 20130905
  2. LIPITOR [Concomitant]
  3. MULTIVITAMIN [Concomitant]
  4. VIT B [Concomitant]
  5. VIT C [Concomitant]
  6. VIT D [Concomitant]
  7. CALCIUM [Concomitant]
  8. MAGNESIUM [Concomitant]

REACTIONS (3)
  - Abnormal behaviour [None]
  - Memory impairment [None]
  - Incoherent [None]
